FAERS Safety Report 6600746-0 (Version None)
Quarter: 2010Q1

REPORT INFORMATION
  Report Type: 
  Country: None (occurrence: None)
  Receive Date: 20100223
  Receipt Date: 20100223
  Transmission Date: 20100710
  Serious: Yes (Life-Threatening, Hospitalization)
  Sender: FDA-Public Use
  Company Number: None

PATIENT
  Age: 46 Year
  Sex: Male
  Weight: 129.2752 kg

DRUGS (1)
  1. LISINOPRIL [Suspect]
     Indication: RENAL DISORDER
     Dosage: DAILY PO
     Route: 048
     Dates: start: 20081101, end: 20100212

REACTIONS (3)
  - ANAPHYLACTIC REACTION [None]
  - APPARENT DEATH [None]
  - UNRESPONSIVE TO STIMULI [None]
